FAERS Safety Report 18597080 (Version 2)
Quarter: 2020Q4

REPORT INFORMATION
  Report Type: Report from Study
  Country: DE (occurrence: DE)
  Receive Date: 20201209
  Receipt Date: 20201216
  Transmission Date: 20210114
  Serious: Yes (Death, Hospitalization)
  Sender: FDA-Public Use
  Company Number: DE-MYLANLABS-2020M1099903

PATIENT
  Age: 73 Year
  Sex: Male
  Weight: 80 kg

DRUGS (7)
  1. CARBOPLATIN. [Suspect]
     Active Substance: CARBOPLATIN
     Indication: NON-SMALL CELL LUNG CANCER
     Dosage: 220 MG, UNKNOWN
     Dates: start: 20201005
  2. DEXAMETHASONE. [Concomitant]
     Active Substance: DEXAMETHASONE
     Indication: PRODUCT USED FOR UNKNOWN INDICATION
     Dosage: 12 MG, UNKNOWN, ADMINISTERED PER CYCLE, THERAPY DATE FOR ALL: FROM 05-OCT UNTIL 26-OCT-2020
     Route: 042
  3. CARBOPLATIN. [Suspect]
     Active Substance: CARBOPLATIN
     Dosage: 170 MG, UNKNOWN
  4. PEGFILGRASTIM [Concomitant]
     Active Substance: PEGFILGRASTIM
     Indication: PRODUCT USED FOR UNKNOWN INDICATION
     Dosage: 6 MG, UNKNOWN, ADMINISTERED PER CYCLE, THERAPY DATE FOR ALL: FROM 05OCT UNTIL 26OCT2020
     Route: 058
  5. PEMETREXED. [Suspect]
     Active Substance: PEMETREXED
     Dosage: 500 MG, UNKNOWN
     Route: 042
     Dates: start: 20201005
  6. PEMETREXED. [Suspect]
     Active Substance: PEMETREXED
     Indication: NON-SMALL CELL LUNG CANCER
     Dosage: 350 MG, UNKNOWN
     Route: 042
  7. GRANISETRON [Concomitant]
     Active Substance: GRANISETRON
     Indication: PRODUCT USED FOR UNKNOWN INDICATION
     Dosage: 1 MG, UNKNOWN, ADMINISTERED PER CYCLE, THERAPY DATE FOR ALL: FROM 05-OCT UNTIL 26-OCT-2020
     Route: 042

REACTIONS (1)
  - Staphylococcal sepsis [Fatal]

NARRATIVE: CASE EVENT DATE: 20201103
